FAERS Safety Report 18148773 (Version 5)
Quarter: 2024Q1

REPORT INFORMATION
  Report Type: Spontaneous
  Country: US (occurrence: US)
  Receive Date: 20200813
  Receipt Date: 20240112
  Transmission Date: 20240410
  Serious: Yes (Other)
  Sender: FDA-Public Use
  Company Number: US-GILEAD-2020-0489270

PATIENT
  Age: 60 Year
  Sex: Male
  Weight: 88.435 kg

DRUGS (101)
  1. TRUVADA [Suspect]
     Active Substance: EMTRICITABINE\TENOFOVIR DISOPROXIL FUMARATE
     Indication: HIV infection
     Dosage: UNK
     Route: 048
     Dates: start: 200908, end: 20160914
  2. VIREAD [Suspect]
     Active Substance: TENOFOVIR DISOPROXIL FUMARATE
     Indication: HIV infection
     Dosage: UNK
     Route: 048
     Dates: start: 2003, end: 2004
  3. VIREAD [Suspect]
     Active Substance: TENOFOVIR DISOPROXIL FUMARATE
     Dosage: UNK
     Route: 048
     Dates: start: 200306, end: 200407
  4. DESCOVY [Concomitant]
     Active Substance: EMTRICITABINE\TENOFOVIR ALAFENAMIDE FUMARATE
     Indication: HIV infection
  5. EMTRIVA [Concomitant]
     Active Substance: EMTRICITABINE
     Indication: HIV infection
  6. CRIXIVAN [Concomitant]
     Active Substance: INDINAVIR SULFATE
     Indication: HIV infection
  7. EDURANT [Concomitant]
     Active Substance: RILPIVIRINE HYDROCHLORIDE
     Indication: HIV infection
  8. EPIVIR [Concomitant]
     Active Substance: LAMIVUDINE
     Indication: HIV infection
  9. ISENTRESS [Concomitant]
     Active Substance: RALTEGRAVIR POTASSIUM
     Indication: HIV infection
  10. JULUCA [Concomitant]
     Active Substance: DOLUTEGRAVIR SODIUM\RILPIVIRINE HYDROCHLORIDE
     Indication: HIV infection
  11. NORVIR [Concomitant]
     Active Substance: RITONAVIR
     Indication: HIV infection
  12. RETROVIR [Concomitant]
     Active Substance: ZIDOVUDINE
     Indication: HIV infection
  13. REYATAZ [Concomitant]
     Active Substance: ATAZANAVIR SULFATE
     Indication: HIV infection
  14. SUSTIVA [Concomitant]
     Active Substance: EFAVIRENZ
     Indication: HIV infection
  15. VIDEX [Concomitant]
     Active Substance: DIDANOSINE
     Indication: HIV infection
  16. VIRAMUNE [Concomitant]
     Active Substance: NEVIRAPINE
     Indication: HIV infection
  17. ZERIT [Concomitant]
     Active Substance: STAVUDINE
     Indication: HIV infection
  18. ACETAMINOPHEN [Concomitant]
     Active Substance: ACETAMINOPHEN
     Indication: Pain
  19. AMOXICILLIN [Concomitant]
     Active Substance: AMOXICILLIN
     Indication: Bacterial infection
  20. AQUAPHILIC [Concomitant]
     Indication: Skin cosmetic procedure
  21. ASCORBIC ACID [Concomitant]
     Active Substance: ASCORBIC ACID
     Indication: Hypovitaminosis
  22. ASPIRIN [Concomitant]
     Active Substance: ASPIRIN
     Indication: Pain
  23. ATAZANAVIR [Concomitant]
     Active Substance: ATAZANAVIR
     Indication: HIV infection
  24. ATOVAQUONE [Concomitant]
     Active Substance: ATOVAQUONE
     Indication: Antifungal treatment
  25. AZELAIC ACID [Concomitant]
     Active Substance: AZELAIC ACID
     Indication: Infection
  26. AZITHROMYCIN [Concomitant]
     Active Substance: AZITHROMYCIN
     Indication: Bacterial infection
  27. BACITRACIN [Concomitant]
     Active Substance: BACITRACIN
     Indication: Infection
  28. BENZOYL PEROXIDE [Concomitant]
     Active Substance: BENZOYL PEROXIDE
     Indication: Infection
  29. BISACODYL [Concomitant]
     Active Substance: BISACODYL
     Indication: Laxative supportive care
  30. UREA [Concomitant]
     Active Substance: UREA
     Indication: Skin cosmetic procedure
  31. CEPHALEXIN [Concomitant]
     Active Substance: CEPHALEXIN
     Indication: Bacterial infection
  32. CETIRIZINE HYDROCHLORIDE [Concomitant]
     Active Substance: CETIRIZINE HYDROCHLORIDE
     Indication: Hypersensitivity
  33. CHLORHEXIDINE [Concomitant]
     Active Substance: CHLORHEXIDINE\CHLORHEXIDINE GLUCONATE
     Indication: Infection
  34. CHLORPROMAZINE [Concomitant]
     Active Substance: CHLORPROMAZINE
     Indication: Antipsychotic drug level therapeutic
  35. CHOLECALCIFEROL [Concomitant]
     Active Substance: CHOLECALCIFEROL
     Indication: Bone density abnormal
  36. CIPROFLOXACIN [Concomitant]
     Active Substance: CIPROFLOXACIN
     Indication: Bacterial infection
  37. CITALOPRAM [Concomitant]
     Active Substance: CITALOPRAM HYDROBROMIDE
     Indication: Anxiety
  38. CLOTRIMAZOLE [Concomitant]
     Active Substance: CLOTRIMAZOLE
     Indication: Fungal infection
  39. DAPSONE [Concomitant]
     Active Substance: DAPSONE
     Indication: Antibiotic level therapeutic
  40. DESONIDE [Concomitant]
     Active Substance: DESONIDE
     Indication: Inflammation
  41. DIAZEPAM [Concomitant]
     Active Substance: DIAZEPAM
     Indication: Sedative therapy
  42. DICLOXACILLIN [Concomitant]
     Active Substance: DICLOXACILLIN
     Indication: Bacterial infection
  43. DIDANOSINE [Concomitant]
     Active Substance: DIDANOSINE
     Indication: HIV infection
  44. DIPHENHYDRAMINE [Concomitant]
     Active Substance: DIPHENHYDRAMINE
     Indication: Hypersensitivity
  45. DOCUSATE [Concomitant]
     Active Substance: DOCUSATE
     Indication: Laxative supportive care
  46. DOLUTEGRAVIR [Concomitant]
     Active Substance: DOLUTEGRAVIR
     Indication: HIV infection
  47. EFAVIRENZ [Concomitant]
     Active Substance: EFAVIRENZ
     Indication: HIV infection
  48. EMTRICITABINE [Concomitant]
     Active Substance: EMTRICITABINE
  49. ETRAVIRINE [Concomitant]
     Active Substance: ETRAVIRINE
     Indication: HIV infection
  50. FISH OIL [Concomitant]
     Active Substance: FISH OIL
     Indication: Supplementation therapy
  51. FLUCONAZOLE [Concomitant]
     Active Substance: FLUCONAZOLE
     Indication: Fungal infection
  52. FLUOCINONIDE [Concomitant]
     Active Substance: FLUOCINONIDE
     Indication: Inflammation
  53. GRISEOFULVIN [Concomitant]
     Active Substance: GRISEOFULVIN
     Indication: Fungal infection
  54. GUAIFENESIN [Concomitant]
     Active Substance: GUAIFENESIN
     Indication: Cough
  55. HYDROCODONE [Concomitant]
     Active Substance: HYDROCODONE
     Indication: Pain
  56. HYDROCORTISONE [Concomitant]
     Active Substance: HYDROCORTISONE
     Indication: Inflammation
  57. HYDROXYZINE [Concomitant]
     Active Substance: HYDROXYZINE HYDROCHLORIDE
     Indication: Anxiety
  58. IBUPROFEN [Concomitant]
     Active Substance: IBUPROFEN
     Indication: Pain
  59. IMIQUIMOD [Concomitant]
     Active Substance: IMIQUIMOD
     Indication: Skin cosmetic procedure
  60. INDINAVIR [Concomitant]
     Active Substance: INDINAVIR
     Indication: HIV infection
  61. LAMIVUDINE [Concomitant]
     Active Substance: LAMIVUDINE
     Indication: HIV infection
  62. LITHIUM CARBONATE [Concomitant]
     Active Substance: LITHIUM CARBONATE
     Indication: Mania
  63. LOPERAMIDE [Concomitant]
     Active Substance: LOPERAMIDE
     Indication: Irritable bowel syndrome
  64. LOPINAVIR [Concomitant]
     Active Substance: LOPINAVIR
     Indication: HIV infection
  65. METHOCARBAMOL [Concomitant]
     Active Substance: METHOCARBAMOL
     Indication: Muscle relaxant therapy
  66. METRONIDAZOLE [Concomitant]
     Active Substance: METRONIDAZOLE
     Indication: Bacterial infection
  67. DIETARY SUPPLEMENT\HERBALS\MILK THISTLE [Concomitant]
     Active Substance: MILK THISTLE
     Indication: Supplementation therapy
  68. MIRTAZAPINE [Concomitant]
     Active Substance: MIRTAZAPINE
     Indication: Anxiety
  69. VITAMINS NOS [Concomitant]
     Active Substance: VITAMINS
     Indication: Supplementation therapy
  70. NAPHAZOLINE [Concomitant]
     Active Substance: NAPHAZOLINE\NAPHAZOLINE HYDROCHLORIDE
     Indication: Eye irritation
  71. NAPROXEN [Concomitant]
     Active Substance: NAPROXEN
     Indication: Pain
  72. NELFINAVIR [Concomitant]
     Active Substance: NELFINAVIR
     Indication: HIV infection
  73. NEVIRAPINE [Concomitant]
     Active Substance: NEVIRAPINE
     Indication: HIV infection
  74. NICOTINE POLACRILEX [Concomitant]
     Active Substance: NICOTINE
     Indication: Ex-tobacco user
  75. NICOTINE TRANSDERMAL SYSTEM [Concomitant]
     Active Substance: NICOTINE
     Indication: Ex-tobacco user
  76. NYSTATIN [Concomitant]
     Active Substance: NYSTATIN
     Indication: Fungal infection
  77. OMEPRAZOLE [Concomitant]
     Active Substance: OMEPRAZOLE
     Indication: Gastrooesophageal reflux disease
  78. PENICILLIN [Concomitant]
     Active Substance: PENICILLIN
     Indication: Bacterial infection
  79. PERMETHRIN [Concomitant]
     Active Substance: PERMETHRIN
     Indication: Parasite allergy
  80. PERPHENAZINE [Concomitant]
     Active Substance: PERPHENAZINE
     Indication: Mania
  81. PHENYLEPHRINE [Concomitant]
     Active Substance: PHENYLEPHRINE HYDROCHLORIDE
     Indication: Nasopharyngitis
  82. PNEUMOCOCCAL VACCINE POLYVALENT NOS [Concomitant]
     Active Substance: PNEUMOCOCCAL VACCINE POLYVALENT
     Indication: Immunisation
  83. HIGH DENSITY POLYETHYLENE [Concomitant]
     Active Substance: HIGH DENSITY POLYETHYLENE
     Indication: Laxative supportive care
  84. PRAZOSIN HYDROCHLORIDE [Concomitant]
     Active Substance: PRAZOSIN HYDROCHLORIDE
     Indication: Hypertension
  85. PREDNISONE [Concomitant]
     Active Substance: PREDNISONE
     Indication: Inflammation
  86. HERBALS\PLANTAGO INDICA WHOLE [Concomitant]
     Active Substance: HERBALS\PLANTAGO INDICA WHOLE
     Indication: Laxative supportive care
  87. SAQUINAVIR [Concomitant]
     Active Substance: SAQUINAVIR
     Indication: HIV infection
  88. SERTRALINE [Concomitant]
     Active Substance: SERTRALINE HYDROCHLORIDE
     Indication: Anxiety
  89. SILDENAFIL CITRATE [Concomitant]
     Active Substance: SILDENAFIL CITRATE
     Indication: Vasodilation procedure
  90. SULFAMETHOXAZOLE [Concomitant]
     Active Substance: SULFAMETHOXAZOLE
     Indication: Bacterial infection
  91. TENOFOVIR [Concomitant]
     Active Substance: TENOFOVIR
     Indication: HIV infection
  92. TESTOSTERONE [Concomitant]
     Active Substance: TESTOSTERONE
     Indication: Hormone therapy
  93. TRETINOIN [Concomitant]
     Active Substance: TRETINOIN
     Indication: Skin cosmetic procedure
  94. TRIAMCINOLONE [Concomitant]
     Active Substance: TRIAMCINOLONE
     Indication: Skin cosmetic procedure
  95. TUBERCULIN NOS [Concomitant]
     Active Substance: TUBERCULIN PURIFIED PROTEIN DERIVATIVE
     Indication: Mycobacterium tuberculosis complex test
  96. VARDENAFIL [Concomitant]
     Active Substance: VARDENAFIL HYDROCHLORIDE
     Indication: Vasodilation procedure
  97. ZIDOVUDINE [Concomitant]
     Active Substance: ZIDOVUDINE
     Indication: HIV infection
  98. BUPROPION [Concomitant]
     Active Substance: BUPROPION
     Indication: Anxiety
  99. TERBINAFINE [Concomitant]
     Active Substance: TERBINAFINE
  100. TRAMADOL [Concomitant]
     Active Substance: TRAMADOL\TRAMADOL HYDROCHLORIDE
  101. DOXYCYCLINE [Concomitant]
     Active Substance: DOXYCYCLINE

REACTIONS (12)
  - Osteoporosis [Not Recovered/Not Resolved]
  - Spinal compression fracture [Not Recovered/Not Resolved]
  - Osteonecrosis [Unknown]
  - Bone density decreased [Unknown]
  - Bone loss [Unknown]
  - Osteopenia [Not Recovered/Not Resolved]
  - Emotional distress [Unknown]
  - Anhedonia [Unknown]
  - Anxiety [Unknown]
  - Pain [Unknown]
  - Gait disturbance [Unknown]
  - Loss of personal independence in daily activities [Unknown]

NARRATIVE: CASE EVENT DATE: 20140729
